FAERS Safety Report 7743527-7 (Version None)
Quarter: 2011Q3

REPORT INFORMATION
  Report Type: 
  Country: None (occurrence: None)
  Receive Date: 20110912
  Receipt Date: 20110901
  Transmission Date: 20111222
  Serious: No
  Sender: FDA-Public Use
  Company Number: US-JNJFOC-20110902305

PATIENT
  Sex: Female
  Weight: 61.24 kg

DRUGS (7)
  1. QUINAPRIL HCL [Concomitant]
     Indication: HYPERTENSION
     Route: 048
  2. ASPIRIN [Concomitant]
     Route: 048
  3. SANDOZ FENTANYL TRANSDERMAL SYSTEM [Suspect]
     Indication: BACK PAIN
     Dosage: NDC#: 0781-7240-55
     Route: 062
     Dates: start: 20110819
  4. ALENDRONATE SODIUM [Concomitant]
     Indication: OSTEOPOROSIS
     Route: 048
     Dates: start: 20080101
  5. DICLOFENAC [Concomitant]
     Indication: ARTHRITIS
     Route: 048
  6. FELODIPINE [Concomitant]
     Indication: HYPERTENSION
     Route: 048
  7. CALCIUM CARBONATE [Concomitant]
     Indication: OSTEOPOROSIS
     Route: 048

REACTIONS (2)
  - APPLICATION SITE SCAB [None]
  - DRUG DOSE OMISSION [None]
